FAERS Safety Report 10467299 (Version 2)
Quarter: 2014Q4

REPORT INFORMATION
  Report Type: Spontaneous
  Country: JP (occurrence: JP)
  Receive Date: 20140922
  Receipt Date: 20141205
  Transmission Date: 20150528
  Serious: Yes (Hospitalization, Other)
  Sender: FDA-Public Use
  Company Number: JP-ASTRAZENECA-2014SE68781

PATIENT
  Age: 77 Year
  Sex: Female
  Weight: 36 kg

DRUGS (15)
  1. LYRICA [Suspect]
     Active Substance: PREGABALIN
     Indication: NEURALGIA
     Route: 048
     Dates: start: 20140628, end: 20140702
  2. REBAMIPIDE [Concomitant]
     Active Substance: REBAMIPIDE
     Route: 048
     Dates: start: 20140628
  3. MYOCORD [Concomitant]
  4. HANP [Concomitant]
     Active Substance: CARPERITIDE
  5. LECICARBON [Suspect]
     Active Substance: SODIUM BICARBONATE\SODIUM PHOSPHATE, MONOBASIC
     Dosage: A FEW TIMES AS NEEDED
     Route: 065
     Dates: start: 20140620
  6. LYRICA [Suspect]
     Active Substance: PREGABALIN
     Indication: NEURALGIA
     Route: 048
     Dates: start: 20140703, end: 20140704
  7. DAI-KENCHU-TO [Concomitant]
     Active Substance: MALTOSE
  8. LASIX [Concomitant]
     Active Substance: FUROSEMIDE
  9. NEXIUM [Suspect]
     Active Substance: ESOMEPRAZOLE MAGNESIUM
     Route: 048
     Dates: start: 20140620
  10. LYRICA [Suspect]
     Active Substance: PREGABALIN
     Indication: NEURALGIA
     Route: 048
     Dates: start: 20140622, end: 20140626
  11. LYRICA [Suspect]
     Active Substance: PREGABALIN
     Indication: NEURALGIA
     Route: 048
     Dates: start: 20140627, end: 20140627
  12. VOLTAREN [Suspect]
     Active Substance: DICLOFENAC SODIUM
     Dosage: A FEW TIMES AS NEEDED;
     Route: 065
     Dates: start: 20140620
  13. LOXONIN [Suspect]
     Active Substance: LOXOPROFEN SODIUM
     Indication: PAIN
     Route: 048
     Dates: start: 20140620
  14. SENNA [Concomitant]
     Active Substance: SENNA LEAF\SENNOSIDES\SENNOSIDES A AND B
  15. CEFMETAZOLE [Suspect]
     Active Substance: CEFMETAZOLE
     Route: 065
     Dates: start: 20140623, end: 20140625

REACTIONS (4)
  - Respiratory failure [Recovering/Resolving]
  - Condition aggravated [Unknown]
  - Interstitial lung disease [Recovered/Resolved]
  - Pain [Unknown]

NARRATIVE: CASE EVENT DATE: 201406
